FAERS Safety Report 12563932 (Version 1)
Quarter: 2016Q3

REPORT INFORMATION
  Report Type: Report from Study
  Country: BE (occurrence: BE)
  Receive Date: 20160716
  Receipt Date: 20160716
  Transmission Date: 20161109
  Serious: Yes (Hospitalization)
  Sender: FDA-Public Use
  Company Number: BE-BIOGEN-2013BI086853

PATIENT
  Age: 48 Year
  Sex: Female
  Weight: 52 kg

DRUGS (2)
  1. TETRAZEPAM [Concomitant]
     Active Substance: TETRAZEPAM
     Indication: MYALGIA
     Route: 065
     Dates: start: 201309, end: 201309
  2. BG00012 [Suspect]
     Active Substance: DIMETHYL FUMARATE
     Indication: MULTIPLE SCLEROSIS
     Route: 048
     Dates: start: 20100224

REACTIONS (1)
  - Psychiatric decompensation [Recovered/Resolved]

NARRATIVE: CASE EVENT DATE: 20130904
